FAERS Safety Report 25912662 (Version 1)
Quarter: 2025Q4

REPORT INFORMATION
  Report Type: Spontaneous
  Country: SA (occurrence: SA)
  Receive Date: 20251013
  Receipt Date: 20251013
  Transmission Date: 20260117
  Serious: Yes (Death, Hospitalization, Other)
  Sender: AMGEN
  Company Number: SA-AMGEN-SAUSP2025201707

PATIENT

DRUGS (6)
  1. ARANESP [Suspect]
     Active Substance: DARBEPOETIN ALFA
     Indication: Product used for unknown indication
     Dosage: 0.45 MILLIGRAM/KILOGRAM, QWK
     Route: 058
  2. ARANESP [Suspect]
     Active Substance: DARBEPOETIN ALFA
     Dosage: 0.75 MILLIGRAM/KILOGRAM, Q2WK
     Route: 058
  3. ALFACALCIDOL [Concomitant]
     Active Substance: ALFACALCIDOL
     Dosage: UNK UNK, QD, PO OR IV; 0.05-0.1 MCG/KG/DAY
  4. RENVELA [Concomitant]
     Active Substance: SEVELAMER CARBONATE
  5. Ferosac [Concomitant]
     Dosage: 100 MILLIGRAM
  6. Seacal [Concomitant]

REACTIONS (11)
  - Cardiovascular disorder [Fatal]
  - Death [Fatal]
  - Angina unstable [Unknown]
  - Myocardial ischaemia [Unknown]
  - Myocardial infarction [Unknown]
  - Cardiac failure [Unknown]
  - Cerebrovascular accident [Unknown]
  - Atrial fibrillation [Unknown]
  - Atrial flutter [Unknown]
  - Peripheral vascular disorder [Unknown]
  - Fracture [Unknown]
